FAERS Safety Report 7785920-2 (Version None)
Quarter: 2011Q3

REPORT INFORMATION
  Report Type: 
  Country: None (occurrence: None)
  Receive Date: 20110929
  Receipt Date: 20110926
  Transmission Date: 20111222
  Serious: Yes (Death, Life-Threatening, Hospitalization, Other)
  Sender: FDA-Public Use
  Company Number: GB-CELGENEUS-167-C5013-11081007

PATIENT
  Sex: Male

DRUGS (9)
  1. MELPHALAN HYDROCHLORIDE [Suspect]
     Route: 065
     Dates: start: 20100717, end: 20100810
  2. DEXAMETHASONE [Concomitant]
     Indication: MULTIPLE MYELOMA
     Route: 065
     Dates: start: 20110112, end: 20110706
  3. ANTITHROMBOTIC AGENTS [Concomitant]
     Indication: THROMBOSIS PROPHYLAXIS
     Route: 065
  4. THALIDOMIDE [Suspect]
     Route: 048
     Dates: start: 20100717, end: 20100810
  5. VELCADE [Concomitant]
     Indication: MULTIPLE MYELOMA
     Route: 065
     Dates: start: 20110112, end: 20110706
  6. THALIDOMIDE [Suspect]
     Indication: MULTIPLE MYELOMA
     Route: 048
     Dates: start: 20090810
  7. PREDNISONE [Suspect]
     Indication: MULTIPLE MYELOMA
     Route: 065
     Dates: start: 20090810
  8. PREDNISONE [Suspect]
     Route: 065
     Dates: start: 20100717, end: 20100810
  9. MELPHALAN HYDROCHLORIDE [Suspect]
     Indication: MULTIPLE MYELOMA
     Route: 065
     Dates: start: 20090810

REACTIONS (2)
  - PLEURAL EFFUSION [None]
  - LUNG ADENOCARCINOMA STAGE IV [None]
